FAERS Safety Report 8613601-1 (Version None)
Quarter: 2012Q3

REPORT INFORMATION
  Report Type: 
  Country: None (occurrence: None)
  Receive Date: 20120823
  Receipt Date: 20120808
  Transmission Date: 20120928
  Serious: Yes (Other)
  Sender: FDA-Public Use
  Company Number: US-009507513-1207USA004953

PATIENT

DRUGS (4)
  1. PEG-INTRON [Suspect]
     Indication: HEPATITIS C
     Dosage: 0.5 ML, UNK
     Dates: start: 20120413
  2. REBETOL [Suspect]
     Indication: HEPATITIS C
     Dosage: UNK
     Dates: start: 20120413
  3. PEG-INTRON [Suspect]
     Dosage: 0.4 ML, UNK
  4. VICTRELIS [Suspect]
     Indication: HEPATITIS C
     Dosage: UNK
     Dates: start: 20120511

REACTIONS (15)
  - DYSGEUSIA [None]
  - RASH [None]
  - HEADACHE [None]
  - ANAEMIA [None]
  - IRRITABILITY [None]
  - HEPATITIS C [None]
  - PRURITUS GENERALISED [None]
  - WHITE BLOOD CELL COUNT DECREASED [None]
  - MALAISE [None]
  - NAUSEA [None]
  - POOR QUALITY SLEEP [None]
  - FATIGUE [None]
  - DEPRESSION [None]
  - DEPRESSED MOOD [None]
  - HYPERSOMNIA [None]
